FAERS Safety Report 10542775 (Version 1)
Quarter: 2014Q4

REPORT INFORMATION
  Report Type: Spontaneous
  Country: US (occurrence: None)
  Receive Date: 20141023
  Receipt Date: 20141023
  Transmission Date: 20150529
  Serious: Yes (Life-Threatening)
  Sender: FDA-Public Use
  Company Number: 54973 AE 1571

PATIENT
  Age: 9 Month
  Sex: Male
  Weight: 9.98 kg

DRUGS (2)
  1. BABY TEETHING [Suspect]
     Active Substance: ARABICA COFFEE BEAN\ATROPA BELLADONNA\CALCIUM PHOSPHATE\CHAMOMILE
     Indication: TEETHING
     Dosage: 2-3 TABS ONCE A WEEK
  2. BABY TEETHING [Suspect]
     Active Substance: ARABICA COFFEE BEAN\ATROPA BELLADONNA\CALCIUM PHOSPHATE\CHAMOMILE
     Indication: PYREXIA
     Dosage: 2-3 TABS ONCE A WEEK

REACTIONS (4)
  - Chills [None]
  - Seizure [None]
  - Muscle spasms [None]
  - Tremor [None]

NARRATIVE: CASE EVENT DATE: 20140919
